FAERS Safety Report 6300646-X (Version None)
Quarter: 2009Q3

REPORT INFORMATION
  Report Type: 
  Country: None (occurrence: None)
  Receive Date: 20090803
  Receipt Date: 20090720
  Transmission Date: 20100115
  Serious: Yes (Life-Threatening)
  Sender: FDA-Public Use
  Company Number: GB-DEXPHARM-20091042

PATIENT
  Age: 77 Year
  Sex: Male

DRUGS (9)
  1. OMEPRAZOLE [Suspect]
     Dosage: 20 MG MILLIGRAM(S) ORAL
     Route: 048
     Dates: end: 20060101
  2. ALENDRONIC ACID [Concomitant]
  3. AMLODIPINE [Concomitant]
  4. CODEINE PHOSPHATE [Concomitant]
  5. LEVOTHYROXINE [Concomitant]
  6. ACETAMINOPHEN [Concomitant]
  7. PREDNISOLONE [Concomitant]
  8. RANITIDINE [Concomitant]
  9. SIMVASTATIN [Concomitant]

REACTIONS (2)
  - RENAL FAILURE CHRONIC [None]
  - TUBULOINTERSTITIAL NEPHRITIS [None]
